FAERS Safety Report 6137549-X (Version None)
Quarter: 2009Q1

REPORT INFORMATION
  Report Type: 
  Country: None (occurrence: None)
  Receive Date: 20090327
  Receipt Date: 20090319
  Transmission Date: 20090719
  Serious: Yes (Hospitalization)
  Sender: FDA-Public Use
  Company Number: 2009AL001603

PATIENT
  Age: 77 Year
  Sex: Female

DRUGS (4)
  1. HYDROCHLOROTHIAZIDE [Suspect]
     Indication: HYPERTENSION
     Dosage: 50 MG; QD; PO
     Route: 048
     Dates: start: 20020101
  2. LISINOPRIL [Concomitant]
  3. DIOVAN [Concomitant]
  4. MEVACOR [Concomitant]

REACTIONS (2)
  - CHEST DISCOMFORT [None]
  - HYPOKALAEMIA [None]
